FAERS Safety Report 12910393 (Version 1)
Quarter: 2016Q4

REPORT INFORMATION
  Report Type: Spontaneous
  Country: GB (occurrence: GB)
  Receive Date: 20161104
  Receipt Date: 20161104
  Transmission Date: 20170207
  Serious: Yes (Hospitalization)
  Sender: FDA-Public Use
  Company Number: GB-TEVA-707918ACC

PATIENT
  Age: 83 Year
  Sex: Female
  Weight: 87 kg

DRUGS (15)
  1. VENLAFAXINE [Suspect]
     Active Substance: VENLAFAXINE HYDROCHLORIDE
     Dosage: 75 MILLIGRAM DAILY;
     Route: 048
     Dates: start: 20160801, end: 20160914
  2. BETAHISTINE [Concomitant]
     Active Substance: BETAHISTINE
  3. FERROUS FUMARATE [Concomitant]
     Active Substance: FERROUS FUMARATE
  4. FLECAINIDE [Concomitant]
     Active Substance: FLECAINIDE
  5. LEVOTHYROXINE. [Concomitant]
     Active Substance: LEVOTHYROXINE
  6. AMOXICILLIN. [Concomitant]
     Active Substance: AMOXICILLIN
     Dates: start: 20160922
  7. PARACETAMOL [Concomitant]
     Active Substance: ACETAMINOPHEN
  8. DABIGATRAN [Concomitant]
     Active Substance: DABIGATRAN
  9. CALCIUM AND VITAMIN D [Concomitant]
     Active Substance: CALCIUM\VITAMIN D
  10. BISOPROLOL [Concomitant]
     Active Substance: BISOPROLOL
  11. FLUOXETINE [Concomitant]
     Active Substance: FLUOXETINE HYDROCHLORIDE
     Dosage: 20 MILLIGRAM DAILY;
  12. METFORMIN [Concomitant]
     Active Substance: METFORMIN HYDROCHLORIDE
  13. VENLAFAXINE [Suspect]
     Active Substance: VENLAFAXINE HYDROCHLORIDE
     Dosage: 150 MILLIGRAM DAILY;
     Route: 048
     Dates: start: 20160914, end: 20161013
  14. GLICLAZIDE [Concomitant]
     Active Substance: GLICLAZIDE
  15. PIVMECILLINAM [Concomitant]
     Active Substance: PENICILLIN
     Dates: start: 20160915

REACTIONS (3)
  - Mood altered [Not Recovered/Not Resolved]
  - Hallucination [Not Recovered/Not Resolved]
  - Abnormal behaviour [Unknown]

NARRATIVE: CASE EVENT DATE: 201608
